FAERS Safety Report 16347237 (Version 1)
Quarter: 2019Q3

REPORT INFORMATION
  Report Type: Spontaneous
  Country: US (occurrence: US)
  Receive Date: 20190522
  Receipt Date: 20190522
  Transmission Date: 20191004
  Serious: No
  Sender: FDA-Public Use
  Company Number: None

PATIENT
  Age: 57 Year
  Sex: Female
  Weight: 90.13 kg

DRUGS (13)
  1. PRALUENT [Suspect]
     Active Substance: ALIROCUMAB
     Indication: TYPE IIA HYPERLIPIDAEMIA
     Dosage: ?          OTHER FREQUENCY:EVERY OTHER WEEK;?
     Route: 058
     Dates: start: 20181102, end: 20181227
  2. HYDROXYZINE 25 MG [Concomitant]
  3. ASPIRIN 81 MG [Concomitant]
     Active Substance: ASPIRIN
  4. TIZANIDINE 2 MG [Concomitant]
     Active Substance: TIZANIDINE
  5. NEXIUM [Concomitant]
     Active Substance: ESOMEPRAZOLE MAGNESIUM
  6. FIORICET 50-325-40 MG [Concomitant]
  7. HYDROCHLOROTHIAZIDE 25 MG [Concomitant]
     Active Substance: HYDROCHLOROTHIAZIDE
  8. EZETIMIBE 10 MG [Concomitant]
     Active Substance: EZETIMIBE
  9. MONTELUKAST 10 MG [Concomitant]
     Active Substance: MONTELUKAST SODIUM
  10. CETIRIZINE [Concomitant]
     Active Substance: CETIRIZINE HYDROCHLORIDE
  11. ESTRADIOL 10 MG [Concomitant]
  12. FAMOTIDINE 20 MG [Concomitant]
     Active Substance: FAMOTIDINE
  13. ROSUVASTATIN 40 [Concomitant]

REACTIONS (3)
  - Swelling [None]
  - Anaphylactic reaction [None]
  - Feeling abnormal [None]

NARRATIVE: CASE EVENT DATE: 20181227
